FAERS Safety Report 10984577 (Version 2)
Quarter: 2015Q2

REPORT INFORMATION
  Report Type: Spontaneous
  Country: US (occurrence: US)
  Receive Date: 20150403
  Receipt Date: 20150525
  Transmission Date: 20150821
  Serious: No
  Sender: FDA-Public Use
  Company Number: US-JNJFOC-20140419130

PATIENT
  Age: 86 Year
  Sex: Male
  Weight: 79.38 kg

DRUGS (4)
  1. IMODIUM A-D [Suspect]
     Active Substance: LOPERAMIDE HYDROCHLORIDE
     Indication: DIARRHOEA
     Dosage: 4.5 TEASPOONS
     Route: 048
     Dates: start: 20140425, end: 20140425
  2. NIFEDIPINE. [Concomitant]
     Active Substance: NIFEDIPINE
     Route: 065
  3. IMODIUM A-D [Suspect]
     Active Substance: LOPERAMIDE HYDROCHLORIDE
     Route: 048
  4. HYDROCHLOROTHIAZIDE. [Concomitant]
     Active Substance: HYDROCHLOROTHIAZIDE
     Route: 065

REACTIONS (1)
  - Underdose [Unknown]
